FAERS Safety Report 5510273-X (Version None)
Quarter: 2007Q4

REPORT INFORMATION
  Report Type: 
  Country: None (occurrence: None)
  Receive Date: 20071108
  Receipt Date: 20071025
  Transmission Date: 20080405
  Serious: Yes (Hospitalization)
  Sender: FDA-Public Use
  Company Number: BR-ROCHE-528213

PATIENT
  Age: 17 Year
  Sex: Male

DRUGS (5)
  1. ISOTRETINOIN [Suspect]
     Indication: ACNE
     Route: 048
     Dates: start: 20070328, end: 20070801
  2. ISOTRETINOIN [Suspect]
     Dosage: REPORTED AS 20 MG IN ALTERNATE DAYS.
     Route: 048
     Dates: start: 20070801, end: 20071002
  3. NASAL DECONGESTANT NOS [Concomitant]
     Dates: start: 20070101, end: 20070101
  4. UNSPECIFIED DRUG [Concomitant]
     Indication: ACNE
     Dosage: REPORTED AS ANTI-ACNE SOAP.
     Route: 061
  5. UNSPECIFIED DRUG [Concomitant]
     Dosage: REPORTED AS ALBA LOTION.
     Route: 061

REACTIONS (18)
  - ABDOMINAL PAIN [None]
  - AGITATION [None]
  - AMNESIA [None]
  - ASTHENIA [None]
  - CHILLS [None]
  - COMA [None]
  - CONFUSIONAL STATE [None]
  - CONVULSION [None]
  - FATIGUE [None]
  - HYPERHIDROSIS [None]
  - HYPONATRAEMIA [None]
  - LIP DRY [None]
  - MUSCULAR WEAKNESS [None]
  - PYREXIA [None]
  - SINUSITIS [None]
  - TREMOR [None]
  - VOMITING [None]
  - WEIGHT DECREASED [None]
